FAERS Safety Report 7136063-2 (Version None)
Quarter: 2010Q4

REPORT INFORMATION
  Report Type: 
  Country: None (occurrence: None)
  Receive Date: 20101204
  Receipt Date: 20101112
  Transmission Date: 20110411
  Serious: Yes (Other)
  Sender: FDA-Public Use
  Company Number: DE-BAYER-201047916GPV

PATIENT
  Sex: Male

DRUGS (3)
  1. EXTAVIA [Suspect]
     Indication: MULTIPLE SCLEROSIS
     Route: 058
     Dates: start: 20090510
  2. GABAPENTIN [Concomitant]
  3. TRAMADOL HCL [Concomitant]

REACTIONS (2)
  - HEMIPARESIS [None]
  - TRIGEMINAL NEURALGIA [None]
